FAERS Safety Report 9708957 (Version 1)
Quarter: 2013Q4

REPORT INFORMATION
  Report Type: Spontaneous
  Country: US (occurrence: US)
  Receive Date: 20131125
  Receipt Date: 20131125
  Transmission Date: 20140711
  Serious: No
  Sender: FDA-Public Use
  Company Number: US-009507513-1310USA009261

PATIENT
  Age: 49 Year
  Sex: Female

DRUGS (5)
  1. DULERA [Suspect]
     Indication: ASTHMA
     Dosage: TWO PUFFS TWICE DAILY
     Route: 055
     Dates: start: 201309
  2. DULERA [Suspect]
     Dosage: UNK
     Route: 055
     Dates: start: 2011
  3. XOPENEX [Concomitant]
  4. SIMVASTATIN TABLETS, USP [Concomitant]
  5. LOXAPINE [Concomitant]

REACTIONS (1)
  - Dyspnoea [Not Recovered/Not Resolved]
